FAERS Safety Report 9230398 (Version 1)
Quarter: 2013Q2

REPORT INFORMATION
  Report Type: Spontaneous
  Country: FR (occurrence: None)
  Receive Date: 20130411
  Receipt Date: 20130411
  Transmission Date: 20140414
  Serious: Yes (Death)
  Sender: FDA-Public Use
  Company Number: SP06553

PATIENT
  Age: 52 Year
  Sex: Female

DRUGS (9)
  1. OSMOPREP [Suspect]
     Indication: BOWEL PREPARATION
     Dosage: 20 TABLETS, ORAL
     Route: 048
     Dates: start: 20130303, end: 20130303
  2. ATARAX [Suspect]
  3. COTAREG [Concomitant]
  4. PARIET [Concomitant]
  5. TAHOR [Concomitant]
  6. MONOTILDIEM [Concomitant]
  7. XANAX [Concomitant]
  8. LYRICA [Concomitant]
  9. KARDEGIC [Concomitant]

REACTIONS (1)
  - Death [None]
